FAERS Safety Report 13417845 (Version 1)
Quarter: 2017Q2

REPORT INFORMATION
  Report Type: Spontaneous
  Country: US (occurrence: US)
  Receive Date: 20170406
  Receipt Date: 20170406
  Transmission Date: 20170830
  Serious: No
  Sender: FDA-Public Use
  Company Number: US-ALLERGAN-1659064US

PATIENT
  Sex: Female

DRUGS (3)
  1. CANASA [Suspect]
     Active Substance: MESALAMINE
     Indication: PRODUCT USED FOR UNKNOWN INDICATION
     Dosage: 1000 MG, UNK
     Route: 054
     Dates: start: 201604
  2. LEVOXYL [Concomitant]
     Active Substance: LEVOTHYROXINE SODIUM
     Indication: THYROID DISORDER
     Dosage: UNK UNK, QD
     Route: 048
  3. CANASA [Suspect]
     Active Substance: MESALAMINE
     Dosage: 1000 MG, UNK
     Route: 054
     Dates: start: 20160516

REACTIONS (7)
  - Fatigue [Unknown]
  - Weight increased [Unknown]
  - Product physical issue [Unknown]
  - Flatulence [Recovered/Resolved]
  - Constipation [Unknown]
  - Abdominal pain upper [Recovered/Resolved]
  - Anorectal discomfort [Recovering/Resolving]
